FAERS Safety Report 11151942 (Version 1)
Quarter: 2015Q2

REPORT INFORMATION
  Report Type: Spontaneous
  Country: US (occurrence: US)
  Receive Date: 20150601
  Receipt Date: 20150601
  Transmission Date: 20150821
  Serious: No
  Sender: FDA-Public Use
  Company Number: US-ASTRAZENECA-2015SE09704

PATIENT
  Age: 913 Month
  Sex: Male
  Weight: 58.5 kg

DRUGS (8)
  1. LOSARTAN [Concomitant]
     Active Substance: LOSARTAN
  2. SENOFIBRATE [Concomitant]
  3. BYDUREON [Suspect]
     Active Substance: EXENATIDE
     Indication: TYPE 2 DIABETES MELLITUS
     Route: 058
     Dates: start: 201412
  4. BYDUREON [Suspect]
     Active Substance: EXENATIDE
     Indication: TYPE 2 DIABETES MELLITUS
     Route: 058
     Dates: start: 201502
  5. TRILIPIX [Concomitant]
     Active Substance: FENOFIBRIC ACID
     Route: 065
  6. LIPITOR [Concomitant]
     Active Substance: ATORVASTATIN CALCIUM
     Indication: DIABETES MELLITUS
     Route: 048
  7. METFORMIN [Concomitant]
     Active Substance: METFORMIN HYDROCHLORIDE
     Indication: DIABETES MELLITUS
     Route: 048
  8. INSULIN [Concomitant]
     Active Substance: INSULIN NOS
     Indication: DIABETES MELLITUS
     Dosage: 20,TWO TIMES A DAY
     Route: 058

REACTIONS (5)
  - Injection site nodule [Unknown]
  - Injection site bruising [Recovering/Resolving]
  - Constipation [Unknown]
  - Nausea [Unknown]
  - Injection site mass [Unknown]

NARRATIVE: CASE EVENT DATE: 201412
